FAERS Safety Report 8305644-2 (Version None)
Quarter: 2012Q2

REPORT INFORMATION
  Report Type: 
  Country: None (occurrence: None)
  Receive Date: 20120423
  Receipt Date: 20120417
  Transmission Date: 20120825
  Serious: Yes (Hospitalization)
  Sender: FDA-Public Use
  Company Number: US-PFIZER INC-2012095240

PATIENT
  Sex: Male
  Weight: 65.76 kg

DRUGS (16)
  1. VITAMIN D [Concomitant]
     Dosage: 50000 IU, 2X/WEEK
  2. VALCYTE [Concomitant]
     Dosage: 2 PILLS OF 450 MG DAILY
  3. FOLIC ACID [Concomitant]
     Dosage: DAILY
  4. TACROLIMUS [Concomitant]
     Dosage: 3.5 MG, 2X/DAY
  5. MAGNESIUM [Concomitant]
     Dosage: 400 MG, 2X/DAY
  6. REGLAN [Concomitant]
     Dosage: UNK, 2X/DAY
  7. RESTORIL [Concomitant]
     Dosage: DAILY
  8. TAMSULOSIN HYDROCHLORIDE [Concomitant]
     Dosage: DAILY
  9. BACTRIM [Concomitant]
     Dosage: 800 MG THREE TIMES A WEEK
  10. PRILOSEC [Concomitant]
     Dosage: DAILY
  11. MULTI-VITAMINS [Concomitant]
     Dosage: UNK
  12. PREDNISONE [Concomitant]
     Dosage: 5 MG, DAILY
  13. CALCIUM CARBONATE [Concomitant]
     Dosage: 500 MG, 2X/DAY
  14. AZITHROMYCIN [Concomitant]
     Dosage: 250 MG, DAILY
  15. CRESTOR [Concomitant]
     Dosage: 5 MG, DAILY
  16. VFEND [Suspect]
     Indication: LUNG TRANSPLANT
     Dosage: 200 MG, 2X/DAY

REACTIONS (2)
  - RENAL FAILURE CHRONIC [None]
  - BLOOD PRESSURE ABNORMAL [None]
